FAERS Safety Report 4752318-0 (Version None)
Quarter: 2005Q3

REPORT INFORMATION
  Report Type: 
  Country: None (occurrence: None)
  Receive Date: 20050825
  Receipt Date: 20020426
  Transmission Date: 20060218
  Serious: Yes (Congenital Anomaly)
  Sender: FDA-Public Use
  Company Number: FR-GLAXOSMITHKLINE-B0269403A

PATIENT
  Sex: Female
  Weight: 3.1 kg

DRUGS (5)
  1. VENTOLIN [Suspect]
     Indication: DRUG EXPOSURE DURING PREGNANCY
     Route: 065
  2. FRAXIPARINE [Suspect]
     Indication: DRUG EXPOSURE DURING PREGNANCY
     Dosage: .8ML TWICE PER DAY
     Dates: start: 19990422, end: 19990708
  3. BECOTIDE [Suspect]
     Indication: DRUG EXPOSURE DURING PREGNANCY
  4. PREVISCAN [Suspect]
     Indication: DRUG EXPOSURE DURING PREGNANCY
     Dosage: 15MG PER DAY
     Dates: start: 19990726, end: 19991215
  5. ACTIVASE [Suspect]
     Indication: DRUG EXPOSURE DURING PREGNANCY
     Dates: start: 19990708, end: 19990708

REACTIONS (4)
  - APGAR SCORE LOW [None]
  - CAESAREAN SECTION [None]
  - DRUG EXPOSURE DURING PREGNANCY [None]
  - KIDNEY MALFORMATION [None]
